FAERS Safety Report 5300238-5 (Version None)
Quarter: 2007Q2

REPORT INFORMATION
  Report Type: 
  Country: None (occurrence: None)
  Receive Date: 20070418
  Receipt Date: 20070405
  Transmission Date: 20071010
  Serious: Yes (Life-Threatening, Hospitalization, Other)
  Sender: FDA-Public Use
  Company Number: FR-BAYER-200611105BFR

PATIENT
  Age: 68 Year
  Sex: Male

DRUGS (10)
  1. CIPROFLOXACIN HCL [Suspect]
     Indication: INFECTION
     Dosage: TOTAL DAILY DOSE: 1 G  UNIT DOSE: 500 MG
     Route: 048
     Dates: start: 20061106, end: 20061109
  2. AUGMENTIN '125' [Suspect]
     Indication: INFECTION
     Route: 042
     Dates: start: 20061106, end: 20061109
  3. TRIFLUCAN [Suspect]
     Indication: INFECTION
     Route: 042
     Dates: start: 20061106, end: 20061109
  4. ETHYOL [Suspect]
     Indication: UNEVALUABLE EVENT
     Route: 042
     Dates: start: 20060928, end: 20061106
  5. PERFALGAN [Suspect]
     Indication: UNEVALUABLE EVENT
     Route: 042
     Dates: start: 20061106, end: 20061107
  6. PRIMPERAN INJ [Suspect]
     Indication: NAUSEA
     Dosage: TOTAL DAILY DOSE: 60 MG  UNIT DOSE: 10 MG
     Route: 042
     Dates: start: 20061106, end: 20061106
  7. SEROPRAM [Concomitant]
     Indication: UNEVALUABLE EVENT
  8. TEMESTA [Concomitant]
     Indication: UNEVALUABLE EVENT
  9. ACETAMINOPHEN AND TRAMADOL HCL [Concomitant]
     Indication: UNEVALUABLE EVENT
  10. ACETAMINOPHEN [Concomitant]
     Indication: UNEVALUABLE EVENT

REACTIONS (14)
  - AGRANULOCYTOSIS [None]
  - CONJUNCTIVAL OEDEMA [None]
  - ERYTHEMA [None]
  - EYE DISORDER [None]
  - EYE INFECTION [None]
  - HAEMODYNAMIC INSTABILITY [None]
  - KERATITIS [None]
  - MULTI-ORGAN FAILURE [None]
  - NERVOUS SYSTEM DISORDER [None]
  - RENAL FAILURE [None]
  - RESPIRATORY FAILURE [None]
  - SKIN EXFOLIATION [None]
  - SYMBLEPHARON [None]
  - TOXIC EPIDERMAL NECROLYSIS [None]
